FAERS Safety Report 15683559 (Version 1)
Quarter: 2018Q4

REPORT INFORMATION
  Report Type: Report from Study
  Country: CA (occurrence: CA)
  Receive Date: 20181204
  Receipt Date: 20181204
  Transmission Date: 20190205
  Serious: Yes (Other)
  Sender: FDA-Public Use
  Company Number: CA-TEVA-2018-CA-982101

PATIENT
  Age: 70 Year
  Sex: Female

DRUGS (2)
  1. ACETAMINOPHEN. [Concomitant]
     Active Substance: ACETAMINOPHEN
     Indication: CHRONIC SPONTANEOUS URTICARIA
     Dosage: 8 DOSAGE FORMS DAILY;
     Route: 048
  2. MOXIFLOXACIN. [Suspect]
     Active Substance: MOXIFLOXACIN
     Indication: CHRONIC SPONTANEOUS URTICARIA
     Dosage: 1 GTT DAILY;
     Route: 047

REACTIONS (8)
  - Pruritus [Unknown]
  - Product use in unapproved indication [Unknown]
  - Suicidal ideation [Unknown]
  - Drug ineffective for unapproved indication [Unknown]
  - Erythema [Unknown]
  - Skin swelling [Unknown]
  - Feeling hot [Unknown]
  - Urticaria [Unknown]
